FAERS Safety Report 13295082 (Version 1)
Quarter: 2017Q1

REPORT INFORMATION
  Report Type: Spontaneous
  Country: US (occurrence: US)
  Receive Date: 20170303
  Receipt Date: 20170303
  Transmission Date: 20170428
  Serious: No
  Sender: FDA-Public Use
  Company Number: US-JNJFOC-20170217458

PATIENT
  Age: 81 Year
  Sex: Female

DRUGS (15)
  1. TRAMADOL. [Concomitant]
     Active Substance: TRAMADOL
     Indication: PAIN
     Dosage: MIGHT GIVE ADDITIONAL 50 MG IN AFTERNOON AS NECESSARY
     Route: 048
     Dates: start: 20160914
  2. ASPIRIN. [Concomitant]
     Active Substance: ASPIRIN
     Indication: HEADACHE
     Dosage: 2 TABLETS
     Route: 048
  3. IPRATROPIUM BROMIDE. [Concomitant]
     Active Substance: IPRATROPIUM BROMIDE
     Dosage: VIA NEBULISER BY INHALATION 3-4 TIMES DAILY
     Route: 045
     Dates: start: 20160920
  4. SYNTHROID [Concomitant]
     Active Substance: LEVOTHYROXINE SODIUM
     Route: 048
     Dates: start: 20160914
  5. ATROVENT HFA [Concomitant]
     Active Substance: IPRATROPIUM BROMIDE
     Indication: DYSPNOEA
     Dosage: AS NECESSARY
     Route: 055
     Dates: start: 20160914
  6. MIRALAX [Concomitant]
     Active Substance: POLYETHYLENE GLYCOL 3350
     Dosage: CAP DAILY
     Route: 048
  7. NEPTAZANE [Concomitant]
     Active Substance: METHAZOLAMIDE
     Route: 048
  8. COMPAZINE [Concomitant]
     Active Substance: PROCHLORPERAZINE MALEATE
     Indication: NAUSEA
     Dosage: AS NECESSARY
     Route: 048
     Dates: start: 20151120
  9. XARELTO [Suspect]
     Active Substance: RIVAROXABAN
     Indication: DEEP VEIN THROMBOSIS
     Dosage: WITH FOOD FOR 21 DAYS
     Route: 048
     Dates: start: 20170203
  10. DULCOLAX NOS [Concomitant]
     Active Substance: BISACODYL OR DOCUSATE SODIUM
     Dosage: AS NECESSARY IF MIRALAX NO SUFIICIENT
     Route: 054
  11. ESTRACE [Concomitant]
     Active Substance: ESTRADIOL
     Route: 048
     Dates: start: 20160914
  12. COMPAZINE [Concomitant]
     Active Substance: PROCHLORPERAZINE MALEATE
     Indication: VOMITING
     Dosage: AS NECESSARY
     Route: 048
     Dates: start: 20151120
  13. SENNA [Concomitant]
     Active Substance: SENNA LEAF\SENNOSIDES\SENNOSIDES A AND B
     Indication: CONSTIPATION
     Dosage: SENNA S 8.6-50MG, MAY HAVE 1 EXTRA TABLET IN THE AM AS NECESSARY
     Route: 048
  14. TIMOPTIC [Concomitant]
     Active Substance: TIMOLOL MALEATE
     Dosage: 1 DROP IN RIGHT EYE
     Route: 047
  15. TRAZODONE [Concomitant]
     Active Substance: TRAZODONE HYDROCHLORIDE
     Route: 048
     Dates: start: 20160914

REACTIONS (1)
  - Peripheral swelling [Unknown]

NARRATIVE: CASE EVENT DATE: 201702
